FAERS Safety Report 4752402-1 (Version None)
Quarter: 2005Q3

REPORT INFORMATION
  Report Type: 
  Country: None (occurrence: None)
  Receive Date: 20050823
  Receipt Date: 20050810
  Transmission Date: 20060218
  Serious: Yes (Hospitalization, Other)
  Sender: FDA-Public Use
  Company Number: 2005093335

PATIENT
  Age: 16 Year
  Sex: Female

DRUGS (4)
  1. ZITHROMAX [Suspect]
     Indication: SINUSITIS
     Dosage: 500 MG (250 MG, 2 IN 1 D), ORAL
     Route: 048
     Dates: start: 20050519, end: 20050521
  2. FEMIGOA (ETHINYLESTRADIOL, LEVONOGESTREL) [Suspect]
     Indication: CONTRACEPTION
     Dosage: (DAILY), ORAL
     Route: 048
     Dates: end: 20050601
  3. ETILEFRINE (ETILEFRINE) [Concomitant]
  4. ALL OTHER THERAPEUTIC PRODUCTS (ALL OTHER THERAPEUTIC PRODUCTS) [Concomitant]

REACTIONS (4)
  - DRUG INTERACTION [None]
  - DRUG TOXICITY [None]
  - PANCREATITIS [None]
  - SINUSITIS [None]
